FAERS Safety Report 13204990 (Version 1)
Quarter: 2017Q1

REPORT INFORMATION
  Report Type: Spontaneous
  Country: US (occurrence: US)
  Receive Date: 20170209
  Receipt Date: 20170209
  Transmission Date: 20170428
  Serious: Yes (Other)
  Sender: FDA-Public Use
  Company Number: US-PFIZER INC-2017058630

PATIENT
  Age: 33 Year
  Sex: Male
  Weight: 83 kg

DRUGS (2)
  1. EFFEXOR [Suspect]
     Active Substance: VENLAFAXINE HYDROCHLORIDE
     Indication: AFFECTIVE DISORDER
     Dosage: 450 MG, DAILY; 2 OF 75 MG AND THEN I ALSO TAKE 2 OF 150 MG
     Route: 048
  2. EFFEXOR [Suspect]
     Active Substance: VENLAFAXINE HYDROCHLORIDE
     Dosage: 450 MG, DAILY; 2 OF 75 MG AND THEN I ALSO TAKE 2 OF 150 MG
     Route: 048

REACTIONS (4)
  - Homicidal ideation [Unknown]
  - Anger [Unknown]
  - Overdose [Unknown]
  - Suicidal ideation [Unknown]
